FAERS Safety Report 18608412 (Version 1)
Quarter: 2020Q4

REPORT INFORMATION
  Report Type: Spontaneous
  Country: US (occurrence: US)
  Receive Date: 20201212
  Receipt Date: 20201212
  Transmission Date: 20210114
  Serious: No
  Sender: FDA-Public Use
  Company Number: US-ELI_LILLY_AND_COMPANY-US202012003574

PATIENT
  Sex: Female

DRUGS (1)
  1. TRULICITY [Suspect]
     Active Substance: DULAGLUTIDE
     Indication: PRODUCT USED FOR UNKNOWN INDICATION
     Dosage: 0.75 MG, UNKNOWN
     Route: 065

REACTIONS (11)
  - Agitation [Unknown]
  - Diarrhoea [Unknown]
  - Weight increased [Unknown]
  - Headache [Unknown]
  - Abdominal pain upper [Unknown]
  - Pollakiuria [Unknown]
  - Constipation [Unknown]
  - Anxiety [Unknown]
  - Nervousness [Unknown]
  - Insomnia [Unknown]
  - Feeling jittery [Unknown]
